FAERS Safety Report 24551756 (Version 3)
Quarter: 2025Q1

REPORT INFORMATION
  Report Type: Report from Study
  Country: US (occurrence: US)
  Receive Date: 20241026
  Receipt Date: 20250322
  Transmission Date: 20250408
  Serious: Yes (Other)
  Sender: ABBVIE
  Company Number: US-ABBVIE-5977389

PATIENT
  Age: 34 Year
  Sex: Male
  Weight: 82 kg

DRUGS (1)
  1. SKYRIZI [Suspect]
     Active Substance: RISANKIZUMAB-RZAA
     Indication: Crohn^s disease
     Route: 058
     Dates: start: 20240319

REACTIONS (2)
  - Ileostomy [Recovering/Resolving]
  - Ileostomy closure [Recovering/Resolving]

NARRATIVE: CASE EVENT DATE: 20240930
